FAERS Safety Report 7322584-6 (Version None)
Quarter: 2011Q1

REPORT INFORMATION
  Report Type: 
  Country: None (occurrence: None)
  Receive Date: 20110301
  Receipt Date: 20091119
  Transmission Date: 20110831
  Serious: No
  Sender: FDA-Public Use
  Company Number: US-PFIZER INC-2009255478

PATIENT
  Sex: Male
  Weight: 113 kg

DRUGS (6)
  1. GLIPIZIDE [Suspect]
     Dosage: 10 MG, 2X/DAY
     Route: 048
     Dates: start: 20090608, end: 20090710
  2. FINASTERIDE [Concomitant]
     Dosage: 5 MG, 1X/DAY
  3. ZETIA [Concomitant]
     Dosage: 10 MG, 1X/DAY
  4. WARFARIN SODIUM [Concomitant]
     Dosage: UNK
  5. LISINOPRIL [Concomitant]
     Dosage: 10 MG, 1X/DAY
  6. METFORMIN [Concomitant]
     Dosage: 500 MG, 2X/DAY

REACTIONS (2)
  - BLOOD GLUCOSE INCREASED [None]
  - DRUG INEFFECTIVE [None]
